FAERS Safety Report 7382129-1 (Version None)
Quarter: 2011Q1

REPORT INFORMATION
  Report Type: 
  Country: None (occurrence: None)
  Receive Date: 20110329
  Receipt Date: 20101210
  Transmission Date: 20110831
  Serious: No
  Sender: FDA-Public Use
  Company Number: US-BAYER-2011-004964

PATIENT
  Sex: Female

DRUGS (4)
  1. ALEVE (CAPLET) [Suspect]
     Indication: PYREXIA
     Dosage: 2 DF, BID
     Route: 048
     Dates: start: 20101208, end: 20101209
  2. ALEVE (CAPLET) [Suspect]
     Indication: PAIN
     Dosage: 2 DF, UNK
     Route: 048
  3. ALEVE (CAPLET) [Suspect]
     Indication: NASOPHARYNGITIS
     Dosage: 2 TABLETS 6:30AM AND 1 TABLET 6:30PM
     Route: 048
     Dates: start: 20101207, end: 20101207
  4. ALBUTEROL [Concomitant]

REACTIONS (1)
  - NO ADVERSE EVENT [None]
